FAERS Safety Report 4321208-X (Version None)
Quarter: 2004Q1

REPORT INFORMATION
  Report Type: 
  Country: None (occurrence: None)
  Receive Date: 20040322
  Receipt Date: 20040322
  Transmission Date: 20041129
  Serious: No
  Sender: FDA-Public Use
  Company Number: None

PATIENT
  Sex: Male
  Weight: 102.0593 kg

DRUGS (10)
  1. DEPAKOTE [Suspect]
     Indication: CONVULSION
     Dosage: 250 MG BID ORAL
     Route: 048
     Dates: start: 20040112, end: 20040227
  2. DEPAKOTE [Suspect]
     Indication: CONVULSION
     Dosage: 1000 MG BID ORAL
     Route: 048
     Dates: start: 20040112, end: 20040227
  3. ALBUTEROL [Concomitant]
  4. BISACODYL [Concomitant]
  5. CLOTRIMAZOLE [Concomitant]
  6. DOCUSATE [Concomitant]
  7. ENALAPRIL MALEATE [Concomitant]
  8. RISPERIDONE [Concomitant]
  9. SEREVENT [Concomitant]
  10. MULTI-VITAMINS [Concomitant]

REACTIONS (3)
  - BODY TEMPERATURE INCREASED [None]
  - HEADACHE [None]
  - NEUTROPHIL COUNT DECREASED [None]
